FAERS Safety Report 4884984-3 (Version None)
Quarter: 2006Q1

REPORT INFORMATION
  Report Type: 
  Country: None (occurrence: None)
  Receive Date: 20060119
  Receipt Date: 20060105
  Transmission Date: 20060701
  Serious: Yes (Hospitalization)
  Sender: FDA-Public Use
  Company Number: FR-JNJFOC-20060103288

PATIENT
  Age: 32 Year
  Sex: Male

DRUGS (5)
  1. TRAMADOL HCL [Suspect]
     Route: 048
  2. TRAMADOL HCL [Suspect]
     Indication: INTENTIONAL OVERDOSE
     Route: 048
  3. NEURONTIN [Concomitant]
     Route: 065
  4. RIVOTRIL [Concomitant]
     Route: 065
  5. ATARAX [Concomitant]
     Route: 065

REACTIONS (9)
  - CARDIAC FAILURE [None]
  - CARDIO-RESPIRATORY ARREST [None]
  - GLASGOW COMA SCALE ABNORMAL [None]
  - GRAND MAL CONVULSION [None]
  - HYPOXIA [None]
  - INTENTIONAL OVERDOSE [None]
  - RENAL FAILURE [None]
  - SUICIDE ATTEMPT [None]
  - VENTRICULAR TACHYCARDIA [None]
